FAERS Safety Report 8259241-8 (Version None)
Quarter: 2012Q2

REPORT INFORMATION
  Report Type: 
  Country: None (occurrence: None)
  Receive Date: 20120404
  Receipt Date: 20120330
  Transmission Date: 20120825
  Serious: Yes (Other)
  Sender: FDA-Public Use
  Company Number: US-ASTRAZENECA-2012SE06204

PATIENT
  Age: 44 Year
  Sex: Female
  Weight: 47.6 kg

DRUGS (7)
  1. XANAX [Concomitant]
     Indication: PANIC DISORDER
  2. TRAMADOL HCL [Concomitant]
  3. VICODIN [Concomitant]
     Indication: MUSCLE SPASMS
  4. VICODIN [Concomitant]
     Indication: ARTHRITIS
  5. XANAX [Concomitant]
     Indication: ANXIETY
  6. SEROQUEL [Suspect]
     Indication: BIPOLAR DISORDER
     Route: 048
  7. VICODIN [Concomitant]
     Indication: HEADACHE

REACTIONS (3)
  - INTENTIONAL DRUG MISUSE [None]
  - WEIGHT INCREASED [None]
  - DYSKINESIA [None]
